FAERS Safety Report 15798028 (Version 1)
Quarter: 2019Q1

REPORT INFORMATION
  Report Type: Spontaneous
  Country: US (occurrence: US)
  Receive Date: 20190102
  Receipt Date: 20190102
  Transmission Date: 20190417
  Serious: No
  Sender: FDA-Public Use
  Company Number: None

PATIENT

DRUGS (2)
  1. VITAMIN D3 [Suspect]
     Active Substance: CHOLECALCIFEROL
  2. ERGOCALCIFEROL ERGOCALCIFEROL [Suspect]
     Active Substance: ERGOCALCIFEROL

REACTIONS (3)
  - Transcription medication error [None]
  - Product name confusion [None]
  - Device computer issue [None]
